APPROVED DRUG PRODUCT: VIENVA
Active Ingredient: ETHINYL ESTRADIOL; LEVONORGESTREL
Strength: 0.02MG;0.1MG
Dosage Form/Route: TABLET;ORAL-28
Application: A201088 | Product #001 | TE Code: AB1
Applicant: XIROMED PHARMA ESPANA SL
Approved: May 21, 2015 | RLD: No | RS: No | Type: RX